FAERS Safety Report 17073005 (Version 4)
Quarter: 2020Q2

REPORT INFORMATION
  Report Type: Spontaneous
  Country: US (occurrence: US)
  Receive Date: 20191125
  Receipt Date: 20200407
  Transmission Date: 20200713
  Serious: No
  Sender: FDA-Public Use
  Company Number: US-ARRAY-2019-06748

PATIENT

DRUGS (8)
  1. BRAFTOVI [Suspect]
     Active Substance: ENCORAFENIB
     Indication: METASTASES TO LYMPH NODES
  2. MEKTOVI [Suspect]
     Active Substance: BINIMETINIB
     Indication: MALIGNANT MELANOMA
     Dosage: 45 MG, BID
     Route: 048
     Dates: start: 20191107
  3. MEKTOVI [Suspect]
     Active Substance: BINIMETINIB
     Indication: METASTASES TO LYMPH NODES
  4. BRAFTOVI [Suspect]
     Active Substance: ENCORAFENIB
     Indication: METASTASES TO LYMPH NODES
  5. BRAFTOVI [Suspect]
     Active Substance: ENCORAFENIB
     Indication: MALIGNANT MELANOMA
  6. MEKTOVI [Suspect]
     Active Substance: BINIMETINIB
     Indication: METASTASES TO LYMPH NODES
  7. BRAFTOVI [Suspect]
     Active Substance: ENCORAFENIB
     Indication: MALIGNANT MELANOMA
     Dosage: 450 MG, QD
     Route: 048
     Dates: start: 20191107
  8. MEKTOVI [Suspect]
     Active Substance: BINIMETINIB
     Indication: MALIGNANT MELANOMA
     Dosage: 30 MG, BID
     Route: 048

REACTIONS (4)
  - Adverse drug reaction [Unknown]
  - Rash pruritic [Unknown]
  - Product dose omission [Recovered/Resolved]
  - Product dose omission [Unknown]
